FAERS Safety Report 9946208 (Version 1)
Quarter: 2014Q1

REPORT INFORMATION
  Report Type: Spontaneous
  Country: US (occurrence: US)
  Receive Date: 20140303
  Receipt Date: 20140303
  Transmission Date: 20141002
  Serious: No
  Sender: FDA-Public Use
  Company Number: US-AMGEN-USASP2013086471

PATIENT
  Age: 54 Year
  Sex: Male

DRUGS (7)
  1. ENBREL [Suspect]
     Indication: PRODUCT USED FOR UNKNOWN INDICATION
     Dosage: 50 MG, QWK
     Route: 058
  2. METHOTREXATE [Concomitant]
     Dosage: 2.5 MG, UNK
  3. PLAQUENIL                          /00072602/ [Concomitant]
     Dosage: 200 MG, UNK
  4. IBU [Concomitant]
     Dosage: 200 MG, UNK
  5. MISOPROSTOL [Concomitant]
     Dosage: 100 MUG, UNK
  6. FOLIC ACID [Concomitant]
     Dosage: 1 MG, UNK
  7. VITAMIN D                          /00107901/ [Concomitant]
     Dosage: 400 UNIT, UNK

REACTIONS (2)
  - Injection site bruising [Unknown]
  - Injection site pain [Unknown]
